FAERS Safety Report 6270914-9 (Version None)
Quarter: 2009Q3

REPORT INFORMATION
  Report Type: 
  Country: None (occurrence: None)
  Receive Date: 20090716
  Receipt Date: 20090708
  Transmission Date: 20100115
  Serious: Yes (Hospitalization)
  Sender: FDA-Public Use
  Company Number: PHHO2009US08586

PATIENT
  Sex: Male
  Weight: 87.528 kg

DRUGS (2)
  1. RAD 666 RAD+TAB [Suspect]
     Indication: RENAL CELL CARCINOMA
     Dosage: 35MG WEEKLY
     Route: 048
     Dates: start: 20081215
  2. SORAFENIB [Suspect]
     Indication: RENAL CELL CARCINOMA
     Dosage: 400MG DAILY
     Route: 048
     Dates: start: 20081215

REACTIONS (2)
  - GASTROINTESTINAL HAEMORRHAGE [None]
  - HAEMOGLOBIN DECREASED [None]
